FAERS Safety Report 8235845-3 (Version None)
Quarter: 2012Q1

REPORT INFORMATION
  Report Type: 
  Country: None (occurrence: None)
  Receive Date: 20120326
  Receipt Date: 20120315
  Transmission Date: 20120608
  Serious: Yes (Other)
  Sender: FDA-Public Use
  Company Number: US-ASTRAZENECA-2010SE23656

PATIENT
  Age: 59 Year
  Sex: Female

DRUGS (2)
  1. ENTOCORT EC [Suspect]
     Route: 048
  2. NEXIUM [Suspect]
     Route: 048

REACTIONS (9)
  - ASTHENIA [None]
  - MALAISE [None]
  - INTENTIONAL DRUG MISUSE [None]
  - NEURODEGENERATIVE DISORDER [None]
  - GASTROINTESTINAL DISORDER [None]
  - HYPOACUSIS [None]
  - PAIN [None]
  - FAECAL INCONTINENCE [None]
  - COLITIS MICROSCOPIC [None]
